FAERS Safety Report 17146695 (Version 1)
Quarter: 2019Q4

REPORT INFORMATION
  Report Type: Spontaneous
  Country: US (occurrence: US)
  Receive Date: 20191212
  Receipt Date: 20191212
  Transmission Date: 20200122
  Serious: Yes (Disabling)
  Sender: FDA-Public Use
  Company Number: US-PROCTER_AND_GAMBLE-GS19068717

PATIENT
  Sex: Female
  Weight: 65.31 kg

DRUGS (13)
  1. GEMFIBROZIL. [Concomitant]
     Active Substance: GEMFIBROZIL
  2. ATORVASTATIN [Concomitant]
     Active Substance: ATORVASTATIN
  3. OLANZAPINE. [Concomitant]
     Active Substance: OLANZAPINE
  4. LEVOTHYROXINE. [Concomitant]
     Active Substance: LEVOTHYROXINE
  5. CREST 3DWHITE WHITENING THERAPY SENSITIVITY CARE [Suspect]
     Active Substance: POTASSIUM NITRATE\SODIUM FLUORIDE
     Indication: DENTAL DISORDER PROPHYLAXIS
     Dosage: SMALL AMOUNT, 1-2 TIMES DAILY
     Route: 002
     Dates: start: 201812, end: 201905
  6. METFORMIN [Concomitant]
     Active Substance: METFORMIN HYDROCHLORIDE
  7. VITAMIN [Concomitant]
     Active Substance: VITAMINS
  8. MEDICATION [Concomitant]
     Active Substance: UNSPECIFIED INGREDIENT
  9. LANTUS [Concomitant]
     Active Substance: INSULIN GLARGINE
  10. LISINOPRIL. [Concomitant]
     Active Substance: LISINOPRIL
  11. VICTOZA [Concomitant]
     Active Substance: LIRAGLUTIDE
  12. BABY ASPIRIN [Concomitant]
     Active Substance: ASPIRIN
  13. FLONASE                            /00908302/ [Concomitant]
     Active Substance: MOMETASONE FUROATE

REACTIONS (8)
  - Product use issue [Unknown]
  - Taste disorder [Recovering/Resolving]
  - Ageusia [Not Recovered/Not Resolved]
  - Weight decreased [Not Recovered/Not Resolved]
  - Aptyalism [Recovering/Resolving]
  - Hypoaesthesia oral [Not Recovered/Not Resolved]
  - Foreign body in respiratory tract [Recovering/Resolving]
  - Dysphagia [Not Recovered/Not Resolved]

NARRATIVE: CASE EVENT DATE: 2019
